FAERS Safety Report 21338103 (Version 1)
Quarter: 2022Q3

REPORT INFORMATION
  Report Type: Spontaneous
  Country: US (occurrence: US)
  Receive Date: 20220915
  Receipt Date: 20220915
  Transmission Date: 20221026
  Serious: No
  Sender: FDA-Public Use
  Company Number: US-PFIZER INC-202201152124

PATIENT

DRUGS (1)
  1. LATANOPROST [Suspect]
     Active Substance: LATANOPROST
     Dosage: ONE DROP IN EACH EYE IN THE EVENING

REACTIONS (5)
  - Ocular discomfort [Unknown]
  - Fatigue [Unknown]
  - Product container issue [Unknown]
  - Incorrect dose administered [Unknown]
  - Extra dose administered [Unknown]
